FAERS Safety Report 8863697 (Version 1)
Quarter: 2012Q4

REPORT INFORMATION
  Report Type: 
  Country: US (occurrence: US)
  Receive Date: 20121024
  Receipt Date: 20121024
  Transmission Date: 20130627
  Serious: Yes (Other)
  Sender: FDA-Public Use
  Company Number: US-AMGEN-USASP2011063513

PATIENT
  Age: 42 Year
  Sex: Female

DRUGS (2)
  1. ENBREL [Suspect]
     Indication: RHEUMATOID ARTHRITIS
     Dosage: 50 mg, qwk
     Dates: start: 20110301, end: 2011
  2. ENBREL [Suspect]
     Dosage: 50 mg, qwk
     Dates: start: 20111122

REACTIONS (4)
  - Paraesthesia [Not Recovered/Not Resolved]
  - Dermatitis contact [Recovered/Resolved]
  - Dermatitis infected [Recovered/Resolved]
  - Herpes zoster [Recovered/Resolved]
